FAERS Safety Report 17861943 (Version 22)
Quarter: 2021Q3

REPORT INFORMATION
  Report Type: Spontaneous
  Country: GB (occurrence: GB)
  Receive Date: 20200604
  Receipt Date: 20210929
  Transmission Date: 20211014
  Serious: Yes (Hospitalization, Other)
  Sender: FDA-Public Use
  Company Number: GB-ELI_LILLY_AND_COMPANY-GB202005010189

PATIENT
  Age: 59 Year
  Sex: Male

DRUGS (47)
  1. OLANZAPINE. [Suspect]
     Active Substance: OLANZAPINE
     Dosage: 2.5 MG, UNKNOWN
     Route: 065
     Dates: start: 20080823
  2. CLOPIXOL [ZUCLOPENTHIXOL ACETATE] [Suspect]
     Active Substance: ZUCLOPENTHIXOL ACETATE
     Dosage: 400 MG, CYCLIC (400 MG, BIWEEKLY)
     Route: 065
     Dates: start: 20040601, end: 20041018
  3. LITHIUM. [Suspect]
     Active Substance: LITHIUM
     Dosage: 2 G, UNKNOWN
     Route: 065
  4. LITHIUM. [Suspect]
     Active Substance: LITHIUM
     Dosage: 1 G, UNKNOWN
     Route: 048
  5. CLOZARIL [Suspect]
     Active Substance: CLOZAPINE
     Dosage: 100 MG, EACH MORNING
     Route: 048
  6. CLOZARIL [Suspect]
     Active Substance: CLOZAPINE
     Dosage: 400 MG, DAILY
     Route: 048
     Dates: start: 20191209, end: 20191223
  7. LORAZEPAM. [Suspect]
     Active Substance: LORAZEPAM
     Indication: SCHIZOPHRENIA
     Dosage: 1 MG, UNKNOWN
     Route: 048
  8. OLANZAPINE. [Suspect]
     Active Substance: OLANZAPINE
     Dosage: 15 MG, UNKNOWN
     Route: 065
     Dates: start: 20060704
  9. RISPERIDONE. [Suspect]
     Active Substance: RISPERIDONE
     Dosage: 2 MG, BID
     Route: 065
  10. CLOZARIL [Suspect]
     Active Substance: CLOZAPINE
     Dosage: 800 MG, DAILY
     Route: 048
  11. OLANZAPINE. [Suspect]
     Active Substance: OLANZAPINE
     Indication: SCHIZOPHRENIA
     Dosage: 15 MG, UNKNOWN
     Route: 065
     Dates: start: 20040217
  12. RISPERIDONE. [Suspect]
     Active Substance: RISPERIDONE
     Indication: SCHIZOPHRENIA
     Dosage: 3 MG, BID
     Route: 048
  13. RISPERIDONE. [Suspect]
     Active Substance: RISPERIDONE
     Dosage: 3 MG, BID
     Route: 048
  14. RISPERIDONE. [Suspect]
     Active Substance: RISPERIDONE
     Dosage: 1 G, DAILY
     Route: 065
  15. CLOZARIL [Suspect]
     Active Substance: CLOZAPINE
     Indication: SCHIZOPHRENIA
     Dosage: 300 MG, DAILY
     Route: 048
  16. CLOZARIL [Suspect]
     Active Substance: CLOZAPINE
     Dosage: UNK, UNKNOWN
     Route: 048
     Dates: start: 20191223, end: 20191223
  17. CLOZARIL [Suspect]
     Active Substance: CLOZAPINE
     Dosage: 800 MG, DAILY
     Route: 048
  18. CLOPIXOL [ZUCLOPENTHIXOL ACETATE] [Suspect]
     Active Substance: ZUCLOPENTHIXOL ACETATE
     Dosage: 400 MG, WEEKLY (1/W)
     Route: 065
     Dates: start: 20040217, end: 20040601
  19. CLOPIXOL [ZUCLOPENTHIXOL ACETATE] [Suspect]
     Active Substance: ZUCLOPENTHIXOL ACETATE
     Dosage: 400 MG, OTHER (BIWEEKLY)
     Route: 065
     Dates: start: 20041018, end: 20041018
  20. CLOPIXOL [ZUCLOPENTHIXOL ACETATE] [Suspect]
     Active Substance: ZUCLOPENTHIXOL ACETATE
     Dosage: 300 MG, WEEKLY (1/W)
     Route: 030
     Dates: start: 20091018
  21. LITHIUM. [Suspect]
     Active Substance: LITHIUM
     Indication: PRODUCT USED FOR UNKNOWN INDICATION
     Dosage: 1 G, UNKNOWN
     Route: 065
  22. CLOZARIL [Suspect]
     Active Substance: CLOZAPINE
     Dosage: UNK UNK, UNKNOWN
     Route: 048
     Dates: start: 20100823
  23. CLOZARIL [Suspect]
     Active Substance: CLOZAPINE
     Dosage: UNK UNK, UNKNOWN
     Route: 048
     Dates: start: 20200521, end: 2020
  24. CHLORPROMAZINE. [Suspect]
     Active Substance: CHLORPROMAZINE
     Indication: SCHIZOPHRENIA
     Dosage: 75 MG, UNKNOWN
     Route: 065
  25. HALOPERIDOL. [Suspect]
     Active Substance: HALOPERIDOL
     Indication: SCHIZOPHRENIA
     Dosage: 5 MG, BID
     Route: 048
  26. CLOPIXOL [ZUCLOPENTHIXOL ACETATE] [Suspect]
     Active Substance: ZUCLOPENTHIXOL ACETATE
     Dosage: 300 MG, WEEKLY (1/W)
     Route: 030
     Dates: start: 20091009
  27. RISPERIDONE. [Suspect]
     Active Substance: RISPERIDONE
     Dosage: 1 MG, DAILY
     Route: 065
  28. CLOZARIL [Suspect]
     Active Substance: CLOZAPINE
     Dosage: 245 MG, UNKNOWN
     Route: 048
     Dates: start: 20191209, end: 20191223
  29. HALOPERIDOL. [Suspect]
     Active Substance: HALOPERIDOL
     Dosage: 10 MG, BID
     Route: 048
  30. CLOPIXOL [ZUCLOPENTHIXOL ACETATE] [Suspect]
     Active Substance: ZUCLOPENTHIXOL ACETATE
     Indication: PRODUCT USED FOR UNKNOWN INDICATION
     Dosage: 400 MG, CYCLIC (400 MG, BIWEEKLY)
     Route: 065
     Dates: start: 20030204, end: 20040217
  31. RISPERIDONE. [Suspect]
     Active Substance: RISPERIDONE
     Dosage: 1 G, DAILY
     Route: 065
  32. CLOZARIL [Suspect]
     Active Substance: CLOZAPINE
     Dosage: 275 MILLIGRAM, PM
     Route: 065
  33. CLOZARIL [Suspect]
     Active Substance: CLOZAPINE
     Dosage: 245 MG, UNKNOWN
     Route: 065
     Dates: start: 2011
  34. OLANZAPINE. [Suspect]
     Active Substance: OLANZAPINE
     Dosage: 10 MG, UNKNOWN
     Route: 065
  35. CLOZARIL [Suspect]
     Active Substance: CLOZAPINE
     Dosage: 400 MG, DAILY
     Route: 048
  36. CLOZARIL [Suspect]
     Active Substance: CLOZAPINE
     Dosage: UNK, UNKNOWN
     Route: 048
     Dates: start: 20201207
  37. CLOZARIL [Suspect]
     Active Substance: CLOZAPINE
     Dosage: 200 MG, BID
     Route: 048
  38. CLOZARIL [Suspect]
     Active Substance: CLOZAPINE
     Dosage: UNK UNK, UNKNOWN
     Route: 048
     Dates: start: 20201207
  39. CLOZARIL [Suspect]
     Active Substance: CLOZAPINE
     Dosage: 400 MG, BID
     Route: 065
  40. ARIPIPRAZOL [Suspect]
     Active Substance: ARIPIPRAZOLE
     Indication: SCHIZOPHRENIA
     Dosage: 5 MG, UNKNOWN
     Route: 065
  41. HALOPERIDOL. [Suspect]
     Active Substance: HALOPERIDOL
     Dosage: 5 MG, BID
     Route: 048
  42. HALOPERIDOL. [Suspect]
     Active Substance: HALOPERIDOL
     Dosage: 20 MG, BID
     Route: 048
  43. CLOPIXOL [ZUCLOPENTHIXOL ACETATE] [Suspect]
     Active Substance: ZUCLOPENTHIXOL ACETATE
     Dosage: 300 MG, DAILY
     Route: 030
     Dates: start: 20091009
  44. RISPERIDONE. [Suspect]
     Active Substance: RISPERIDONE
     Dosage: 2 MG, BID
     Route: 065
  45. CLOZARIL [Suspect]
     Active Substance: CLOZAPINE
     Dosage: 50 MG, DAILY
     Route: 048
  46. CLOZARIL [Suspect]
     Active Substance: CLOZAPINE
     Dosage: 1 DOSAGE FORM, EACH MORNING
     Route: 048
     Dates: start: 2011
  47. CLOZARIL [Suspect]
     Active Substance: CLOZAPINE
     Dosage: 275 MG, DAILY
     Route: 048
     Dates: start: 20200521, end: 2020

REACTIONS (12)
  - Fatigue [Unknown]
  - Leukopenia [Recovered/Resolved with Sequelae]
  - Psychotic disorder [Recovered/Resolved]
  - Extrapyramidal disorder [Unknown]
  - Neutropenia [Recovered/Resolved]
  - Platelet count decreased [Recovered/Resolved]
  - Lymphocyte count decreased [Unknown]
  - Neutrophil count increased [Unknown]
  - Schizophrenia [Not Recovered/Not Resolved]
  - Hallucination, auditory [Unknown]
  - Delusion of grandeur [Unknown]
  - Affective disorder [Recovered/Resolved]

NARRATIVE: CASE EVENT DATE: 20191126
